FAERS Safety Report 18281308 (Version 2)
Quarter: 2020Q3

REPORT INFORMATION
  Report Type: Report from Study
  Country: KR (occurrence: KR)
  Receive Date: 20200918
  Receipt Date: 20200924
  Transmission Date: 20201103
  Serious: Yes (Death, Life-Threatening, Hospitalization)
  Sender: FDA-Public Use
  Company Number: KR-CELLTRION INC.-2020KR027972

PATIENT

DRUGS (223)
  1. TRUXIMA [Suspect]
     Active Substance: RITUXIMAB-ABBS
     Indication: DIFFUSE LARGE B-CELL LYMPHOMA
     Dosage: UNK
     Route: 042
     Dates: start: 20200728, end: 20200728
  2. TRUXIMA [Suspect]
     Active Substance: RITUXIMAB-ABBS
     Dosage: 500MG/VIAL ONCE AT C1D1(03AUG2020)
     Route: 042
     Dates: start: 20200803
  3. 5% DW 100 ML PP [Concomitant]
     Dosage: 3?1BT
     Dates: start: 20200904
  4. 5% DW 500 ML (BAG) [Concomitant]
     Dosage: 1?1BAG
     Dates: start: 20200910
  5. KCL [Concomitant]
     Active Substance: POTASSIUM CHLORIDE
     Dosage: 1?2A
     Dates: start: 20200912
  6. MEBAPENEM [Concomitant]
     Active Substance: MEROPENEM
     Dosage: 3?1V
     Dates: start: 20200831
  7. MEBAPENEM [Concomitant]
     Active Substance: MEROPENEM
     Dosage: 3?1V
     Dates: start: 20200905
  8. MORPHINE [Concomitant]
     Active Substance: MORPHINE
     Dosage: 1?2A
     Dates: start: 20200908
  9. MORPHINE [Concomitant]
     Active Substance: MORPHINE
     Dosage: 1?1A
     Dates: start: 20200910
  10. NS 100 ML PP [Concomitant]
     Dosage: 1?1BT
     Dates: start: 20200906
  11. SMOFKABIVEN PERIPHERAL [Concomitant]
     Dosage: 1?1BAG
     Dates: start: 20200903
  12. SMOFKABIVEN PERIPHERAL [Concomitant]
     Dosage: 1?1BAG
     Dates: start: 20200907
  13. SMOFKABIVEN PERIPHERAL [Concomitant]
     Dosage: 1?1BAG
     Dates: start: 20200910
  14. SMOFKABIVEN PERIPHERAL [Concomitant]
     Dosage: 1?1BAG
     Dates: start: 20200912
  15. TAMIPOOL [Concomitant]
     Active Substance: VITAMINS
     Dosage: 1?1V
     Dates: start: 20200823
  16. TAMIPOOL [Concomitant]
     Active Substance: VITAMINS
     Dosage: 1?1V
     Dates: start: 20200826
  17. TAMIPOOL [Concomitant]
     Active Substance: VITAMINS
     Dosage: 1?1V
     Dates: start: 20200829
  18. TAMIPOOL [Concomitant]
     Active Substance: VITAMINS
     Dosage: 1?1V
     Dates: start: 20200906
  19. TAMIPOOL [Concomitant]
     Active Substance: VITAMINS
     Dosage: 1?1V
     Dates: start: 20200908
  20. TRANEXAMIC ACID. [Concomitant]
     Active Substance: TRANEXAMIC ACID
     Dosage: 3?1A
     Dates: start: 20200827
  21. TRANEXAMIC ACID. [Concomitant]
     Active Substance: TRANEXAMIC ACID
     Dosage: 3?1A
     Dates: start: 20200902
  22. TRANEXAMIC ACID. [Concomitant]
     Active Substance: TRANEXAMIC ACID
     Dosage: 3?1A
     Dates: start: 20200911
  23. 5% DW 50ML PP [Concomitant]
     Dosage: 3?1BT
     Dates: start: 20200828
  24. NACL [Concomitant]
     Active Substance: SODIUM CHLORIDE
     Dosage: 1?2A
     Dates: start: 20200906
  25. TRAMADOL. [Concomitant]
     Active Substance: TRAMADOL
     Dosage: 1?1A
     Dates: start: 20200830
  26. PANTOLOC [PANTOPRAZOLE] [Concomitant]
     Active Substance: PANTOPRAZOLE SODIUM
     Dosage: 1?1 V
     Dates: start: 20200828
  27. PANTOLOC [PANTOPRAZOLE] [Concomitant]
     Active Substance: PANTOPRAZOLE SODIUM
     Dosage: 1?1 V
     Dates: start: 20200829
  28. 5% DW 1000 ML BAG [Concomitant]
     Dosage: 1?1BAG
     Dates: start: 20200823
  29. ALBUMIN 20% [Concomitant]
     Dosage: 1?BT
     Dates: start: 20200826
  30. HEPARIN SODIUM. [Concomitant]
     Active Substance: HEPARIN SODIUM
     Dosage: 1?1V
     Dates: start: 20200822
  31. SEPTRIN [Concomitant]
     Active Substance: SULFAMETHOXAZOLE\TRIMETHOPRIM
     Dosage: 2?1T
     Dates: start: 20200822
  32. 5% DW 100 ML PP [Concomitant]
     Dosage: 3?1BT
     Dates: start: 20200901
  33. 5% DW 100 ML PP [Concomitant]
     Dosage: 3?1BT
     Dates: start: 20200902
  34. 5% DW 100 ML PP [Concomitant]
     Dosage: 3?1BT
     Dates: start: 20200911
  35. MEBAPENEM [Concomitant]
     Active Substance: MEROPENEM
     Dosage: 3?1V
     Dates: start: 20200907
  36. MEBAPENEM [Concomitant]
     Active Substance: MEROPENEM
     Dosage: 3?1V
     Dates: start: 20200908
  37. MEBAPENEM [Concomitant]
     Active Substance: MEROPENEM
     Dosage: 3?1V
     Dates: start: 20200910
  38. MORPHINE [Concomitant]
     Active Substance: MORPHINE
     Dosage: 1?1A
     Dates: start: 20200911
  39. NS 100 ML PP [Concomitant]
     Dosage: 1?1BT
     Dates: start: 20200823
  40. NS 100 ML PP [Concomitant]
     Dosage: 1?1BT
     Dates: start: 20200824
  41. SMOFKABIVEN PERIPHERAL [Concomitant]
     Dosage: 1?1BAG
     Dates: start: 20200830
  42. SMOFKABIVEN PERIPHERAL [Concomitant]
     Dosage: 1?1BAG
     Dates: start: 20200902
  43. SMOFKABIVEN PERIPHERAL [Concomitant]
     Dosage: 1?1BAG
     Dates: start: 20200905
  44. TAMIPOOL [Concomitant]
     Active Substance: VITAMINS
     Dosage: 1?2V
     Dates: start: 20200822
  45. VITAMIN K1 [Concomitant]
     Active Substance: PHYTONADIONE
     Dosage: 1?1A
     Dates: start: 20200830
  46. VITAMIN K1 [Concomitant]
     Active Substance: PHYTONADIONE
     Dosage: 1?1A
     Dates: start: 20200904
  47. VITAMIN K1 [Concomitant]
     Active Substance: PHYTONADIONE
     Dosage: 1?1A
     Dates: start: 20200912
  48. ACETPHEN PREMIX [Concomitant]
     Dosage: 1?1BAG
     Dates: start: 20200910
  49. 5% DW 50ML PP [Concomitant]
     Dosage: 1?1BT
     Dates: start: 20200830
  50. LASIX [Concomitant]
     Active Substance: FUROSEMIDE
     Dosage: 1?1A
     Dates: start: 20200830
  51. DUROGESIC [Concomitant]
     Active Substance: FENTANYL
     Dosage: 1?1PATCH
     Dates: start: 20200822
  52. PANTOLOC [PANTOPRAZOLE] [Concomitant]
     Active Substance: PANTOPRAZOLE SODIUM
     Dosage: 1?1 V
     Dates: start: 20200825
  53. 5% DW 1000 ML BAG [Concomitant]
     Dosage: 2?1BAG
     Dates: start: 20200826
  54. 5% DW 1000 ML BAG [Concomitant]
     Dosage: 2?1BAG
     Dates: start: 20200827
  55. PLAKON [Concomitant]
     Dosage: 2?1A
     Dates: start: 20200823
  56. TAZOPERAN [Concomitant]
     Dosage: 1?1V
     Dates: start: 20200825
  57. HEPARIN SODIUM. [Concomitant]
     Active Substance: HEPARIN SODIUM
     Dosage: 1?1V
     Dates: start: 20200823
  58. 5% DW 100 ML PP [Concomitant]
     Dosage: 4?1BT
     Dates: start: 20200826
  59. 5% DW 100 ML PP [Concomitant]
     Dosage: 2?1BT
     Dates: start: 20200912
  60. 5% DW 500 ML (BAG) [Concomitant]
     Dosage: 1?1BAG
     Dates: start: 20200911
  61. 5% DW 500 ML (BAG) [Concomitant]
     Dosage: 1?1BAG
     Dates: start: 20200912
  62. KCL [Concomitant]
     Active Substance: POTASSIUM CHLORIDE
     Dosage: 1?1A
     Dates: start: 20200829
  63. KCL [Concomitant]
     Active Substance: POTASSIUM CHLORIDE
     Dosage: 1?2A
     Dates: start: 20200910
  64. MEBAPENEM [Concomitant]
     Active Substance: MEROPENEM
     Dosage: 3?1V
     Dates: start: 20200828
  65. MEBAPENEM [Concomitant]
     Active Substance: MEROPENEM
     Dosage: 3?1V
     Dates: start: 20200901
  66. MEBAPENEM [Concomitant]
     Active Substance: MEROPENEM
     Dosage: 3?1V
     Dates: start: 20200903
  67. MEBAPENEM [Concomitant]
     Active Substance: MEROPENEM
     Dosage: 3?1V
     Dates: start: 20200911
  68. MORPHINE [Concomitant]
     Active Substance: MORPHINE
     Dosage: 1?1A
     Dates: start: 20200912
  69. NS 100 ML PP [Concomitant]
     Dosage: 1?1BT
     Dates: start: 20200907
  70. NS 100 ML PP [Concomitant]
     Dosage: 3?1BT
     Dates: start: 20200912
  71. SMOFKABIVEN PERIPHERAL [Concomitant]
     Dosage: 1?1BAG
     Dates: start: 20200901
  72. SMOFKABIVEN PERIPHERAL [Concomitant]
     Dosage: 1?1BAG
     Dates: start: 20200904
  73. SMOFKABIVEN PERIPHERAL [Concomitant]
     Dosage: 1?1BAG
     Dates: start: 20200909
  74. TAMIPOOL [Concomitant]
     Active Substance: VITAMINS
     Dosage: 2?1V
     Dates: start: 20200827
  75. TAMIPOOL [Concomitant]
     Active Substance: VITAMINS
     Dosage: 1?1V
     Dates: start: 20200910
  76. TAMIPOOL [Concomitant]
     Active Substance: VITAMINS
     Dosage: 1?1V
     Dates: start: 20200911
  77. TRANEXAMIC ACID. [Concomitant]
     Active Substance: TRANEXAMIC ACID
     Dosage: 3?1A
     Dates: start: 20200828
  78. TRANEXAMIC ACID. [Concomitant]
     Active Substance: TRANEXAMIC ACID
     Dosage: 3?1A
     Dates: start: 20200909
  79. VITAMIN K1 [Concomitant]
     Active Substance: PHYTONADIONE
     Dosage: 1?1A
     Dates: start: 20200906
  80. CALCIUM GLUCONATE. [Concomitant]
     Active Substance: CALCIUM GLUCONATE
     Dosage: 1?1A
     Dates: start: 20200910
  81. 5% DW 50ML PP [Concomitant]
     Dosage: 1?1BT
     Dates: start: 20200825
  82. NACL [Concomitant]
     Active Substance: SODIUM CHLORIDE
     Dosage: 1?2A
     Dates: start: 20200907
  83. LASIX [Concomitant]
     Active Substance: FUROSEMIDE
     Dosage: 2?1A
     Dates: start: 20200822
  84. DUROGESIC [Concomitant]
     Active Substance: FENTANYL
     Dosage: 1?1PATCH
     Dates: start: 20200827
  85. DUROGESIC [Concomitant]
     Active Substance: FENTANYL
     Dosage: 1?1PATCH
     Dates: start: 20200831
  86. DUROGESIC [Concomitant]
     Active Substance: FENTANYL
     Dosage: 1?1PATCH
     Dates: start: 20200905
  87. NS 50ML PP [Concomitant]
     Dosage: 1?1BT
     Dates: start: 20200901
  88. TRAMADOL. [Concomitant]
     Active Substance: TRAMADOL
     Dosage: 1?1A
     Dates: start: 20200829
  89. 5% DW 1000 ML BAG [Concomitant]
     Dosage: 1?1BAG
     Dates: start: 20200822
  90. 5% DW 1000 ML BAG [Concomitant]
     Dosage: 1?1BAG
     Dates: start: 20200824
  91. CORTISOLU [Concomitant]
     Active Substance: HYDROCORTISONE SODIUM SUCCINATE
     Dosage: 1?.5V
     Dates: start: 20200824
  92. CORTISOLU [Concomitant]
     Active Substance: HYDROCORTISONE SODIUM SUCCINATE
     Dosage: 1?.5V
     Dates: start: 20200826
  93. OLIMEL E [Concomitant]
     Active Substance: AMINO ACIDS\DEXTROSE\ELECTROLYTES NOS\SOYBEAN OIL
     Dosage: 1?1BAG
     Dates: start: 20200825
  94. PACETA [Concomitant]
     Dosage: 1?1V
     Dates: start: 20200825
  95. TAZOPERAN [Concomitant]
     Dosage: 4?1V
     Dates: start: 20200822
  96. TRIZELE [Concomitant]
     Active Substance: METRONIDAZOLE
     Dosage: 2?1BAG
     Dates: start: 20200822
  97. 5% DW 100 ML PP [Concomitant]
     Dosage: 3?1BT
     Dates: start: 20200903
  98. 5% DW 100 ML PP [Concomitant]
     Dosage: 3?1BT
     Dates: start: 20200909
  99. 5% DW 500 ML (BAG) [Concomitant]
     Dosage: 1?2BAG
     Dates: start: 20200908
  100. KCL [Concomitant]
     Active Substance: POTASSIUM CHLORIDE
     Dosage: 1?2A
     Dates: start: 20200825
  101. KCL [Concomitant]
     Active Substance: POTASSIUM CHLORIDE
     Dosage: 1?2A
     Dates: start: 20200909
  102. MEBAPENEM [Concomitant]
     Active Substance: MEROPENEM
     Dosage: 3?1V
     Dates: start: 20200825
  103. NS 100 ML PP [Concomitant]
     Dosage: 1?1BT
     Dates: start: 20200903
  104. NS 100 ML PP [Concomitant]
     Dosage: 1?1BT
     Dates: start: 20200904
  105. SMOFKABIVEN PERIPHERAL [Concomitant]
     Dosage: 1?1BAG
     Dates: start: 20200908
  106. SMOFKABIVEN PERIPHERAL [Concomitant]
     Dosage: 1?1BAG
     Dates: start: 20200911
  107. VITAMIN K1 [Concomitant]
     Active Substance: PHYTONADIONE
     Dosage: 1?1A
     Dates: start: 20200911
  108. 5% DW 50ML PP [Concomitant]
     Dosage: 5?1BT
     Dates: start: 20200824
  109. 5% DW 50ML PP [Concomitant]
     Dosage: 1?1BT
     Dates: start: 20200826
  110. 5% DW 50ML PP [Concomitant]
     Dosage: 3?1BT
     Dates: start: 20200827
  111. NACL [Concomitant]
     Active Substance: SODIUM CHLORIDE
     Dosage: 1?2A
     Dates: start: 20200902
  112. NACL [Concomitant]
     Active Substance: SODIUM CHLORIDE
     Dosage: 1?2A
     Dates: start: 20200905
  113. DUROGESIC [Concomitant]
     Active Substance: FENTANYL
     Dosage: 1?1PATCH
     Dates: start: 20200902
  114. NS 50ML PP [Concomitant]
     Dosage: 2?1BT
     Dates: start: 20200822
  115. NS 50ML PP [Concomitant]
     Dosage: 1?1BT
     Dates: start: 20200829
  116. PANTOLOC [PANTOPRAZOLE] [Concomitant]
     Active Substance: PANTOPRAZOLE SODIUM
     Dosage: 1?1 V
     Dates: start: 20200824
  117. PANTOLOC [PANTOPRAZOLE] [Concomitant]
     Active Substance: PANTOPRAZOLE SODIUM
     Dosage: 1?1 V
     Dates: start: 20200827
  118. PANTOLOC [PANTOPRAZOLE] [Concomitant]
     Active Substance: PANTOPRAZOLE SODIUM
     Dosage: 1?1 V
     Dates: start: 20200830
  119. CORTISOLU [Concomitant]
     Active Substance: HYDROCORTISONE SODIUM SUCCINATE
     Dosage: 1?.5V
     Dates: start: 20200827
  120. PLAKON [Concomitant]
     Dosage: 1?1A
     Dates: start: 20200826
  121. PLAKON [Concomitant]
     Dosage: 1?1A
     Dates: start: 20200827
  122. ALBUMIN 20% [Concomitant]
     Dosage: 1?BT
     Dates: start: 20200824
  123. TAZOPERAN [Concomitant]
     Dosage: 4?1V
     Dates: start: 20200824
  124. KEROMIN [Concomitant]
     Dosage: 1?.5A
     Dates: start: 20200822
  125. BARACLUDE [Concomitant]
     Active Substance: ENTECAVIR
     Dosage: 1?1T
     Dates: start: 20200822
  126. 5% DW 100 ML PP [Concomitant]
     Dosage: 4?1BT
     Dates: start: 20200829
  127. 5% DW 100 ML PP [Concomitant]
     Dosage: 4?1BT
     Dates: start: 20200831
  128. 5% DW 100 ML PP [Concomitant]
     Dosage: 3?1BT
     Dates: start: 20200907
  129. 5% DW 100 ML PP [Concomitant]
     Dosage: 3?1BT
     Dates: start: 20200910
  130. KCL [Concomitant]
     Active Substance: POTASSIUM CHLORIDE
     Dosage: 1?2A
     Dates: start: 20200826
  131. KCL [Concomitant]
     Active Substance: POTASSIUM CHLORIDE
     Dosage: 2?1A
     Dates: start: 20200828
  132. MEBAPENEM [Concomitant]
     Active Substance: MEROPENEM
     Dosage: 3?1V
     Dates: start: 20200827
  133. MEBAPENEM [Concomitant]
     Active Substance: MEROPENEM
     Dosage: 3?1V
     Dates: start: 20200904
  134. MORPHINE [Concomitant]
     Active Substance: MORPHINE
     Dosage: 1?1A
     Dates: start: 20200912
  135. NS 100 ML PP [Concomitant]
     Dosage: 1?1BT
     Dates: start: 20200905
  136. SMOFKABIVEN PERIPHERAL [Concomitant]
     Dosage: 1?1BAG
     Dates: start: 20200906
  137. TAMIPOOL [Concomitant]
     Active Substance: VITAMINS
     Dosage: 1?1V
     Dates: start: 20200905
  138. TAMIPOOL [Concomitant]
     Active Substance: VITAMINS
     Dosage: 1?1V
     Dates: start: 20200907
  139. TRANEXAMIC ACID. [Concomitant]
     Active Substance: TRANEXAMIC ACID
     Dosage: 1?1A
     Dates: start: 20200826
  140. TRANEXAMIC ACID. [Concomitant]
     Active Substance: TRANEXAMIC ACID
     Dosage: 3?1A
     Dates: start: 20200830
  141. TRANEXAMIC ACID. [Concomitant]
     Active Substance: TRANEXAMIC ACID
     Dosage: 3?1A
     Dates: start: 20200910
  142. TRANEXAMIC ACID. [Concomitant]
     Active Substance: TRANEXAMIC ACID
     Dosage: 2?1A
     Dates: start: 20200912
  143. VITAMIN K1 [Concomitant]
     Active Substance: PHYTONADIONE
     Dosage: 1?1A
     Dates: start: 20200903
  144. VITAMIN K1 [Concomitant]
     Active Substance: PHYTONADIONE
     Dosage: 1?1A
     Dates: start: 20200905
  145. VITAMIN K1 [Concomitant]
     Active Substance: PHYTONADIONE
     Dosage: 1?1A
     Dates: start: 20200907
  146. VITAMIN K1 [Concomitant]
     Active Substance: PHYTONADIONE
     Dosage: 1?1A
     Dates: start: 20200910
  147. 5% DW 50ML PP [Concomitant]
     Dosage: 4?1BT
     Dates: start: 20200822
  148. LASIX [Concomitant]
     Active Substance: FUROSEMIDE
     Dosage: 1?1A
     Dates: start: 20200905
  149. DUROGESIC [Concomitant]
     Active Substance: FENTANYL
     Dosage: 1?1PATCH
     Dates: start: 20200824
  150. PANTOLOC [PANTOPRAZOLE] [Concomitant]
     Active Substance: PANTOPRAZOLE SODIUM
     Dosage: 1?2 V; 1?5V
     Dates: start: 20200823
  151. PANTOLOC [PANTOPRAZOLE] [Concomitant]
     Active Substance: PANTOPRAZOLE SODIUM
     Dosage: 1?1 V
     Dates: start: 20200826
  152. 5% DW 1000 ML BAG [Concomitant]
     Dosage: 1?1BAG
     Dates: start: 20200825
  153. ALBUMIN 20% [Concomitant]
     Dosage: 1?BT
     Dates: start: 20200822
  154. OLIMEL E [Concomitant]
     Active Substance: AMINO ACIDS\DEXTROSE\ELECTROLYTES NOS\SOYBEAN OIL
     Dosage: 1?1BAG
     Dates: start: 20200823
  155. TRUXIMA [Suspect]
     Active Substance: RITUXIMAB-ABBS
     Dosage: 100MG/VIAL ONCE AT C1D1(03AUG2020)
     Route: 042
     Dates: start: 20200803
  156. ACUPAN [Concomitant]
     Active Substance: NEFOPAM HYDROCHLORIDE
     Dosage: 1?1A
     Dates: start: 20200912
  157. 5% DW 100 ML PP [Concomitant]
     Dosage: 4?1BT
     Dates: start: 20200827
  158. 5% DW 100 ML PP [Concomitant]
     Dosage: 3?1BT
     Dates: start: 20200905
  159. KCL [Concomitant]
     Active Substance: POTASSIUM CHLORIDE
     Dosage: 2?1A
     Dates: start: 20200827
  160. MEBAPENEM [Concomitant]
     Active Substance: MEROPENEM
     Dosage: 3?1V
     Dates: start: 20200829
  161. NS 100 ML PP [Concomitant]
     Dosage: UNK, DAILY
     Dates: start: 20200822
  162. NS 100 ML PP [Concomitant]
     Dosage: 1?1BT
     Dates: start: 20200908
  163. NS 100 ML PP [Concomitant]
     Dosage: 1?1BT
     Dates: start: 20200909
  164. NS 100 ML PP [Concomitant]
     Dosage: 2?1BT
     Dates: start: 20200911
  165. TAMIPOOL [Concomitant]
     Active Substance: VITAMINS
     Dosage: 1?1V
     Dates: start: 20200824
  166. TAMIPOOL [Concomitant]
     Active Substance: VITAMINS
     Dosage: 1?1V
     Dates: start: 20200825
  167. TAMIPOOL [Concomitant]
     Active Substance: VITAMINS
     Dosage: 1?1V
     Dates: start: 20200912
  168. TRANEXAMIC ACID. [Concomitant]
     Active Substance: TRANEXAMIC ACID
     Dosage: 3?1A
     Dates: start: 20200829
  169. TRANEXAMIC ACID. [Concomitant]
     Active Substance: TRANEXAMIC ACID
     Dosage: 3?1A
     Dates: start: 20200831
  170. TRANEXAMIC ACID. [Concomitant]
     Active Substance: TRANEXAMIC ACID
     Dosage: 3?1A
     Dates: start: 20200907
  171. 5% DW 50ML PP [Concomitant]
     Dosage: 1?1BT
     Dates: start: 20200910
  172. NACL [Concomitant]
     Active Substance: SODIUM CHLORIDE
     Dosage: 1?2A
     Dates: start: 20200903
  173. NACL [Concomitant]
     Active Substance: SODIUM CHLORIDE
     Dosage: 1?2A
     Dates: start: 20200904
  174. LASIX [Concomitant]
     Active Substance: FUROSEMIDE
     Dosage: 1?1A
     Dates: start: 20200829
  175. NS 50ML PP [Concomitant]
     Dosage: 1?1BT
     Dates: start: 20200830
  176. NS 50ML PP [Concomitant]
     Dosage: 1?1BT
     Dates: start: 20200902
  177. TRAMADOL. [Concomitant]
     Active Substance: TRAMADOL
     Dosage: 1?1A
     Dates: start: 20200901
  178. TRAMADOL. [Concomitant]
     Active Substance: TRAMADOL
     Dosage: 1?1A
     Dates: start: 20200902
  179. CORTISOLU [Concomitant]
     Active Substance: HYDROCORTISONE SODIUM SUCCINATE
     Dosage: 1?1V
     Dates: start: 20200825
  180. PLAKON [Concomitant]
     Dosage: 1?1A
     Dates: start: 20200824
  181. NS 500ML BAG [Concomitant]
     Dosage: 1?1 BAG
     Dates: start: 20200823
  182. ACUPAN [Concomitant]
     Active Substance: NEFOPAM HYDROCHLORIDE
     Dosage: 2?1A
     Dates: start: 20200911
  183. 5% DW 100 ML PP [Concomitant]
     Dosage: 4?1BT
     Dates: start: 20200825
  184. 5% DW 100 ML PP [Concomitant]
     Dosage: 3?1BT
     Dates: start: 20200906
  185. 5% DW 100 ML PP [Concomitant]
     Dosage: 3?1BT
     Dates: start: 20200908
  186. MEBAPENEM [Concomitant]
     Active Substance: MEROPENEM
     Dosage: 3?1V
     Dates: start: 20200830
  187. MEBAPENEM [Concomitant]
     Active Substance: MEROPENEM
     Dosage: 3?1V
     Dates: start: 20200902
  188. MEBAPENEM [Concomitant]
     Active Substance: MEROPENEM
     Dosage: 3?1V
     Dates: start: 20200906
  189. SMOFKABIVEN PERIPHERAL [Concomitant]
     Dosage: 1?1BAG
     Dates: start: 20200829
  190. TAMIPOOL [Concomitant]
     Active Substance: VITAMINS
     Dosage: 2?1V
     Dates: start: 20200828
  191. TAMIPOOL [Concomitant]
     Active Substance: VITAMINS
     Dosage: 1?1V
     Dates: start: 20200909
  192. TRANEXAMIC ACID. [Concomitant]
     Active Substance: TRANEXAMIC ACID
     Dosage: 3?1A
     Dates: start: 20200901
  193. TRANEXAMIC ACID. [Concomitant]
     Active Substance: TRANEXAMIC ACID
     Dosage: 3?1A
     Dates: start: 20200908
  194. VITAMIN K1 [Concomitant]
     Active Substance: PHYTONADIONE
     Dosage: 1?1A
     Dates: start: 20200908
  195. 5% DW 50ML PP [Concomitant]
     Dosage: 4?1BT
     Dates: start: 20200823
  196. NACL [Concomitant]
     Active Substance: SODIUM CHLORIDE
     Dosage: 1?2A
     Dates: start: 20200901
  197. LASIX [Concomitant]
     Active Substance: FUROSEMIDE
     Dosage: 1?1A
     Dates: start: 20200901
  198. 5% DW 1000 ML BAG [Concomitant]
     Dosage: 2?1BAG
     Dates: start: 20200828
  199. 5% DW 1000 ML BAG [Concomitant]
     Dosage: 1?1BAG
     Dates: start: 20200829
  200. CORTISOLU [Concomitant]
     Active Substance: HYDROCORTISONE SODIUM SUCCINATE
     Dosage: 2?.5V
     Dates: start: 20200823
  201. ALBUMIN 20% [Concomitant]
     Dosage: 1?BT
     Dates: start: 20200823
  202. ALBUMIN 20% [Concomitant]
     Dosage: 1?BT
     Dates: start: 20200825
  203. OLIMEL E [Concomitant]
     Active Substance: AMINO ACIDS\DEXTROSE\ELECTROLYTES NOS\SOYBEAN OIL
     Dosage: 1?1BAG
     Dates: start: 20200822
  204. OLIMEL E [Concomitant]
     Active Substance: AMINO ACIDS\DEXTROSE\ELECTROLYTES NOS\SOYBEAN OIL
     Dosage: 1?1BAG
     Dates: start: 20200824
  205. TAZOPERAN [Concomitant]
     Dosage: 4?1V
     Dates: start: 20200823
  206. BUP?4 [Concomitant]
     Active Substance: PROPIVERINE
     Dosage: 1?1T
     Dates: start: 20200822
  207. DAEWON ACYCLOVIR [Concomitant]
     Dosage: 1?1T
     Dates: start: 20200822
  208. 5% DW 100 ML PP [Concomitant]
     Dosage: 4?1BT
     Dates: start: 20200828
  209. 5% DW 100 ML PP [Concomitant]
     Dosage: 4?1BT
     Dates: start: 20200830
  210. KCL [Concomitant]
     Active Substance: POTASSIUM CHLORIDE
     Dosage: 1?2A
     Dates: start: 20200911
  211. MEBAPENEM [Concomitant]
     Active Substance: MEROPENEM
     Dosage: 3?1V
     Dates: start: 20200826
  212. MEBAPENEM [Concomitant]
     Active Substance: MEROPENEM
     Dosage: 3?1V
     Dates: start: 20200909
  213. MEBAPENEM [Concomitant]
     Active Substance: MEROPENEM
     Dosage: 2?1V
     Dates: start: 20200912
  214. MORPHINE [Concomitant]
     Active Substance: MORPHINE
     Dosage: 1?1A
     Dates: start: 20200911
  215. NS 100 ML PP [Concomitant]
     Dosage: 1?1BT
     Dates: start: 20200910
  216. SMOFKABIVEN PERIPHERAL [Concomitant]
     Dosage: 1?1BAG
     Dates: start: 20200831
  217. TAMIPOOL [Concomitant]
     Active Substance: VITAMINS
     Dosage: 1?1V
     Dates: start: 20200903
  218. TAMIPOOL [Concomitant]
     Active Substance: VITAMINS
     Dosage: 1?1V
     Dates: start: 20200904
  219. VITAMIN K1 [Concomitant]
     Active Substance: PHYTONADIONE
     Dosage: 1?1A
     Dates: start: 20200909
  220. PANTOLOC [PANTOPRAZOLE] [Concomitant]
     Active Substance: PANTOPRAZOLE SODIUM
     Dosage: 1?1 V
     Dates: start: 20200822
  221. PANTOLOC [PANTOPRAZOLE] [Concomitant]
     Active Substance: PANTOPRAZOLE SODIUM
     Dosage: 1?1 V
     Dates: start: 20200831
  222. PENIRAMIN [Concomitant]
     Dosage: 1?1A
     Dates: start: 20200825
  223. MACPERAN [Concomitant]
     Active Substance: METOCLOPRAMIDE HYDROCHLORIDE
     Dosage: 1?1A
     Dates: start: 20200822

REACTIONS (2)
  - Gastrointestinal haemorrhage [Not Recovered/Not Resolved]
  - Disease progression [Fatal]

NARRATIVE: CASE EVENT DATE: 20200823
